FAERS Safety Report 7676195-3 (Version None)
Quarter: 2011Q3

REPORT INFORMATION
  Report Type: 
  Country: None (occurrence: None)
  Receive Date: 20110811
  Receipt Date: 20110727
  Transmission Date: 20111222
  Serious: Yes (Hospitalization)
  Sender: FDA-Public Use
  Company Number: UA-UCBSA-8054509

PATIENT
  Sex: Female
  Weight: 92 kg

DRUGS (9)
  1. CERTOLIZUMAB PEGOL [Suspect]
     Dosage: - NR OF DOSES :91
     Route: 030
     Dates: start: 20060503, end: 20091112
  2. GIDRAZIN ISONICOTINAMID [Concomitant]
     Indication: ANTIBIOTIC PROPHYLAXIS
     Route: 048
     Dates: start: 20081015, end: 20090415
  3. METHOTREXATE [Concomitant]
     Indication: RHEUMATOID ARTHRITIS
     Route: 048
     Dates: start: 20050630
  4. DICLOBERL [Concomitant]
     Route: 048
     Dates: start: 20060921, end: 20090425
  5. VITAMIN B6 [Concomitant]
     Indication: ANTIBIOTIC PROPHYLAXIS
     Route: 048
     Dates: start: 20081015, end: 20090415
  6. AUGMENTIN '125' [Concomitant]
     Indication: BRONCHITIS
     Route: 048
     Dates: start: 20070222, end: 20070222
  7. CERTOLIZUMAB PEGOL [Suspect]
     Indication: RHEUMATOID ARTHRITIS
     Dosage: CDP870-50
     Route: 058
     Dates: start: 20060111, end: 20060503
  8. DICLOBERL [Concomitant]
     Indication: RHEUMATOID ARTHRITIS
     Route: 048
     Dates: start: 20050701, end: 20060921
  9. CERTOLIZUMAB PEGOL [Suspect]
     Dates: start: 20091207

REACTIONS (1)
  - PLEURISY [None]
